FAERS Safety Report 10206277 (Version 2)
Quarter: 2014Q2

REPORT INFORMATION
  Report Type: Spontaneous
  Country: US (occurrence: US)
  Receive Date: 20140530
  Receipt Date: 20140530
  Transmission Date: 20141212
  Serious: No
  Sender: FDA-Public Use
  Company Number: US-US-EMD SERONO, INC.-235391K05USA

PATIENT
  Sex: Female

DRUGS (1)
  1. REBIF [Suspect]
     Indication: MULTIPLE SCLEROSIS
     Route: 058
     Dates: start: 20050704, end: 200509

REACTIONS (4)
  - Pancytopenia [Unknown]
  - Alopecia [Unknown]
  - Activated partial thromboplastin time prolonged [Unknown]
  - Anaemia [Unknown]
